FAERS Safety Report 4740773-1 (Version None)
Quarter: 2005Q3

REPORT INFORMATION
  Report Type: 
  Country: None (occurrence: None)
  Receive Date: 20050801
  Receipt Date: 20050629
  Transmission Date: 20060218
  Serious: No
  Sender: FDA-Public Use
  Company Number: 2005PV000186

PATIENT
  Age: 69 Year
  Sex: Female
  Weight: 133.3575 kg

DRUGS (13)
  1. BYETTA [Suspect]
     Indication: DIABETES MELLITUS NON-INSULIN-DEPENDENT
     Dosage: 5 UG;BID;SC
     Route: 058
     Dates: start: 20050622
  2. METOPROLOL [Concomitant]
  3. ZESTRIL [Concomitant]
  4. AMARYL [Concomitant]
  5. ASPIRIN [Concomitant]
  6. CENTRUM [Concomitant]
  7. LIPITOR [Concomitant]
  8. QUININE SULFATE [Concomitant]
  9. ADVAIR DISKUS 100/50 [Concomitant]
  10. APAP TAB [Concomitant]
  11. COUMADIN [Concomitant]
  12. BUMETANIDE [Concomitant]
  13. METOLAZONE [Concomitant]

REACTIONS (1)
  - DECREASED APPETITE [None]
